FAERS Safety Report 10354319 (Version 1)
Quarter: 2014Q3

REPORT INFORMATION
  Report Type: Spontaneous
  Country: US (occurrence: US)
  Receive Date: 20140731
  Receipt Date: 20140731
  Transmission Date: 20150326
  Serious: No
  Sender: FDA-Public Use
  Company Number: US-AMGEN INC.-USASP2014056973

PATIENT
  Age: 63 Year
  Sex: Female

DRUGS (1)
  1. ENBREL [Suspect]
     Active Substance: ETANERCEPT
     Indication: RHEUMATOID ARTHRITIS
     Dosage: 50 MG, QWK
     Route: 065
     Dates: start: 20131122, end: 201404

REACTIONS (5)
  - Pruritus [Recovered/Resolved]
  - Wound secretion [Recovered/Resolved]
  - Scar [Not Recovered/Not Resolved]
  - Skin ulcer [Recovered/Resolved]
  - Skin atrophy [Recovered/Resolved]

NARRATIVE: CASE EVENT DATE: 201404
